FAERS Safety Report 12347806 (Version 1)
Quarter: 2016Q2

REPORT INFORMATION
  Report Type: Spontaneous
  Country: US (occurrence: US)
  Receive Date: 20160509
  Receipt Date: 20160509
  Transmission Date: 20160815
  Serious: No
  Sender: FDA-Public Use
  Company Number: US-GLAXOSMITHKLINE-US2016062530

PATIENT
  Age: 52 Year
  Sex: Female

DRUGS (1)
  1. NICORETTE MINT [Suspect]
     Active Substance: NICOTINE
     Indication: SMOKING CESSATION THERAPY
     Dosage: 4 MG, UNK
     Dates: start: 20160426, end: 20160502

REACTIONS (2)
  - Flushing [Recovered/Resolved]
  - Headache [Recovered/Resolved]

NARRATIVE: CASE EVENT DATE: 20160427
